FAERS Safety Report 19109257 (Version 1)
Quarter: 2021Q2

REPORT INFORMATION
  Report Type: Spontaneous
  Country: US (occurrence: US)
  Receive Date: 20210409
  Receipt Date: 20210409
  Transmission Date: 20210717
  Serious: No
  Sender: FDA-Public Use
  Company Number: US-SPECGX-T202000759

PATIENT
  Sex: Female

DRUGS (1)
  1. RESTORIL [Suspect]
     Active Substance: TEMAZEPAM
     Indication: SLEEP DISORDER
     Dosage: UNK
     Route: 065

REACTIONS (4)
  - Feeling abnormal [Unknown]
  - Fatigue [Unknown]
  - Nausea [Unknown]
  - Asthenia [Unknown]
